FAERS Safety Report 7199918-9 (Version None)
Quarter: 2010Q4

REPORT INFORMATION
  Report Type: 
  Country: None (occurrence: None)
  Receive Date: 20101228
  Receipt Date: 20101220
  Transmission Date: 20110411
  Serious: No
  Sender: FDA-Public Use
  Company Number: US-PFIZER INC-2010175722

PATIENT

DRUGS (2)
  1. CELEBREX [Suspect]
     Dosage: UNK
  2. PLAVIX [Interacting]
     Dosage: UNK

REACTIONS (2)
  - DRUG INTERACTION [None]
  - HAEMORRHAGIC DIATHESIS [None]
